FAERS Safety Report 7107293-0 (Version None)
Quarter: 2010Q4

REPORT INFORMATION
  Report Type: 
  Country: None (occurrence: None)
  Receive Date: 20101116
  Receipt Date: 20101108
  Transmission Date: 20110411
  Serious: Yes (Hospitalization)
  Sender: FDA-Public Use
  Company Number: US-GILEAD-2010-0032949

PATIENT
  Sex: Male
  Weight: 132.11 kg

DRUGS (9)
  1. LETAIRIS [Suspect]
     Indication: PULMONARY HYPERTENSION
     Route: 048
     Dates: start: 20100913
  2. ATACAND [Concomitant]
  3. COREG [Concomitant]
  4. ALLOPURINOL [Concomitant]
  5. DIGOXIN [Concomitant]
  6. TORSEMIDE [Concomitant]
  7. WARFARIN [Concomitant]
  8. BUMEX [Concomitant]
  9. MULTI-VITAMIN [Concomitant]

REACTIONS (2)
  - CORONARY ARTERY DISEASE [None]
  - FLUID RETENTION [None]
